FAERS Safety Report 18503922 (Version 2)
Quarter: 2020Q4

REPORT INFORMATION
  Report Type: Report from Study
  Country: DE (occurrence: DE)
  Receive Date: 20201113
  Receipt Date: 20201230
  Transmission Date: 20210114
  Serious: Yes (Hospitalization)
  Sender: FDA-Public Use
  Company Number: DE-TAKEDA-2020TUS047051

PATIENT

DRUGS (24)
  1. TEDUGLUTIDE [Suspect]
     Active Substance: TEDUGLUTIDE
     Dosage: 2.4 MILLIGRAM (0.04 MG/KG), TEG DOSES PER WEEK 7
     Route: 065
     Dates: start: 20200205
  2. SELENASE [SODIUM SELENATE] [Concomitant]
     Indication: SELENIUM DEFICIENCY
     Dosage: 0.05 MILLIGRAM, QD
     Route: 048
     Dates: start: 201901
  3. TEDUGLUTIDE [Suspect]
     Active Substance: TEDUGLUTIDE
     Indication: SHORT-BOWEL SYNDROME
     Dosage: 2.65 MILLIGRAM (0.05 MG/KG), TEG DOSES PER WEEK 7
     Route: 065
     Dates: start: 20180306, end: 201807
  4. TEDUGLUTIDE [Suspect]
     Active Substance: TEDUGLUTIDE
     Dosage: 1.25 MILLIGRAM (0.02 MG/KG), TEG DOSES PER WEEK 7
     Route: 065
     Dates: start: 20190117, end: 20190710
  5. TEDUGLUTIDE [Suspect]
     Active Substance: TEDUGLUTIDE
     Dosage: 1.25 MILLIGRAM (0.02 MG/KG), TEG DOSES PER WEEK 7
     Route: 065
     Dates: start: 20190117, end: 20190710
  6. TEDUGLUTIDE [Suspect]
     Active Substance: TEDUGLUTIDE
     Dosage: 1.6 MILLIGRAM (0.03 MG/KG), TEG DOSES PER WEEK 7
     Route: 065
     Dates: start: 20190711, end: 20200204
  7. TEDUGLUTIDE [Suspect]
     Active Substance: TEDUGLUTIDE
     Dosage: 2.4 MILLIGRAM (0.04 MG/KG), TEG DOSES PER WEEK 7
     Route: 065
     Dates: start: 20200205
  8. TEDUGLUTIDE [Suspect]
     Active Substance: TEDUGLUTIDE
     Indication: SHORT-BOWEL SYNDROME
     Dosage: 2.65 MILLIGRAM (0.05 MG/KG), TEG DOSES PER WEEK 7
     Route: 065
     Dates: start: 20180306, end: 201807
  9. TEDUGLUTIDE [Suspect]
     Active Substance: TEDUGLUTIDE
     Dosage: 3 MILLIGRAM (0.05 MG/KG), TEG DOSES PER WEEK 7
     Route: 065
     Dates: start: 201807, end: 201811
  10. TEDUGLUTIDE [Suspect]
     Active Substance: TEDUGLUTIDE
     Dosage: 3 MILLIGRAM (0.05 MG/KG), TEG DOSES PER WEEK 7
     Route: 065
     Dates: start: 201807, end: 201811
  11. TEDUGLUTIDE [Suspect]
     Active Substance: TEDUGLUTIDE
     Dosage: 1.6 MILLIGRAM (0.03 MG/KG), TEG DOSES PER WEEK 7
     Route: 065
     Dates: start: 20190711, end: 20200204
  12. TEDUGLUTIDE [Suspect]
     Active Substance: TEDUGLUTIDE
     Dosage: 2.4 MILLIGRAM (0.04 MG/KG), TEG DOSES PER WEEK 7
     Route: 065
     Dates: start: 20200205
  13. TEDUGLUTIDE [Suspect]
     Active Substance: TEDUGLUTIDE
     Indication: SHORT-BOWEL SYNDROME
     Dosage: 2.65 MILLIGRAM (0.05 MG/KG), TEG DOSES PER WEEK 7
     Route: 065
     Dates: start: 20180306, end: 201807
  14. TEDUGLUTIDE [Suspect]
     Active Substance: TEDUGLUTIDE
     Dosage: 3 MILLIGRAM (0.05 MG/KG), TEG DOSES PER WEEK 7
     Route: 065
     Dates: start: 201807, end: 201811
  15. FRUBIASE CALCIUM FORTE [Concomitant]
     Indication: SHORT-BOWEL SYNDROME
     Dosage: 350 MILLIGRAM, BID
     Route: 048
     Dates: start: 20200122
  16. TEDUGLUTIDE [Suspect]
     Active Substance: TEDUGLUTIDE
     Dosage: 1.6 MILLIGRAM (0.03 MG/KG), TEG DOSES PER WEEK 7
     Route: 065
     Dates: start: 20190711, end: 20200204
  17. TEDUGLUTIDE [Suspect]
     Active Substance: TEDUGLUTIDE
     Dosage: 3 MILLIGRAM (0.05 MG/KG), TEG DOSES PER WEEK 7
     Route: 065
     Dates: start: 201807, end: 201811
  18. TEDUGLUTIDE [Suspect]
     Active Substance: TEDUGLUTIDE
     Dosage: 1.25 MILLIGRAM (0.02 MG/KG), TEG DOSES PER WEEK 7
     Route: 065
     Dates: start: 20190117, end: 20190710
  19. CEFUROXIME. [Concomitant]
     Active Substance: CEFUROXIME
     Indication: INFECTION
     Dosage: 750 MILLIGRAM, TID
     Route: 042
     Dates: start: 20201019, end: 20201023
  20. TEDUGLUTIDE [Suspect]
     Active Substance: TEDUGLUTIDE
     Dosage: 1.25 MILLIGRAM (0.02 MG/KG), TEG DOSES PER WEEK 7
     Route: 065
     Dates: start: 20190117, end: 20190710
  21. TEDUGLUTIDE [Suspect]
     Active Substance: TEDUGLUTIDE
     Dosage: 1.6 MILLIGRAM (0.03 MG/KG), TEG DOSES PER WEEK 7
     Route: 065
     Dates: start: 20190711, end: 20200204
  22. TEDUGLUTIDE [Suspect]
     Active Substance: TEDUGLUTIDE
     Indication: SHORT-BOWEL SYNDROME
     Dosage: 2.65 MILLIGRAM (0.05 MG/KG), TEG DOSES PER WEEK 7
     Route: 065
     Dates: start: 20180306, end: 201807
  23. TEDUGLUTIDE [Suspect]
     Active Substance: TEDUGLUTIDE
     Dosage: 2.4 MILLIGRAM (0.04 MG/KG), TEG DOSES PER WEEK 7
     Route: 065
     Dates: start: 20200205
  24. FERMED [SACCHARATED IRON OXIDE] [Concomitant]
     Indication: ANAEMIA
     Dosage: 100 MILLIGRAM, 1/WEEK
     Route: 042
     Dates: start: 20190722, end: 20190805

REACTIONS (2)
  - Vascular device infection [Recovered/Resolved]
  - Catheter site inflammation [Recovered/Resolved]

NARRATIVE: CASE EVENT DATE: 202010
